FAERS Safety Report 9895344 (Version 1)
Quarter: 2014Q1

REPORT INFORMATION
  Report Type: Spontaneous
  Country: US (occurrence: US)
  Receive Date: 20140213
  Receipt Date: 20140213
  Transmission Date: 20141002
  Serious: Yes (Death, Life-Threatening)
  Sender: FDA-Public Use
  Company Number: US-BRISTOL-MYERS SQUIBB COMPANY-18959692

PATIENT
  Age: 86 Year
  Sex: Female

DRUGS (6)
  1. ORENCIA [Suspect]
  2. ENBREL [Suspect]
  3. METHOTREXATE SODIUM [Suspect]
  4. GOLD INJ [Suspect]
  5. TOFACITINIB CITRATE [Suspect]
  6. PREDNISONE [Concomitant]
     Dates: end: 20130308

REACTIONS (2)
  - Septic shock [Fatal]
  - Cellulitis [Fatal]
